FAERS Safety Report 22165770 (Version 1)
Quarter: 2023Q2

REPORT INFORMATION
  Report Type: Spontaneous
  Country: TR (occurrence: TR)
  Receive Date: 20230403
  Receipt Date: 20230403
  Transmission Date: 20230722
  Serious: Yes (Other)
  Sender: FDA-Public Use
  Company Number: TR-BAYER-2023A042331

PATIENT

DRUGS (1)
  1. EYLEA [Suspect]
     Active Substance: AFLIBERCEPT
     Indication: Product used for unknown indication
     Dosage: 1 DF, ONCE, DOSAGE, FREQUENCY AND TOTAL NUMBER OF INJECTIONS ARE UNKNOWN, SOLUTION FOR INJECTION (40
     Dates: start: 20230309, end: 20230309

REACTIONS (3)
  - Blindness [Recovering/Resolving]
  - Non-infectious endophthalmitis [Unknown]
  - Eye pain [Recovering/Resolving]

NARRATIVE: CASE EVENT DATE: 20230310
